FAERS Safety Report 18688010 (Version 2)
Quarter: 2021Q1

REPORT INFORMATION
  Report Type: Spontaneous
  Country: US (occurrence: US)
  Receive Date: 20201231
  Receipt Date: 20210128
  Transmission Date: 20210419
  Serious: Yes (Other)
  Sender: FDA-Public Use
  Company Number: US-009507513-2012USA011017

PATIENT
  Age: 67 Year
  Sex: Male

DRUGS (7)
  1. FUROSEMIDE. [Concomitant]
     Active Substance: FUROSEMIDE
     Indication: CARDIAC FAILURE
     Dosage: UNK
  2. CEPHALEXIN. [Concomitant]
     Active Substance: CEPHALEXIN
     Indication: GOUT
     Dosage: UNK
  3. CEPHALEXIN. [Concomitant]
     Active Substance: CEPHALEXIN
     Indication: CELLULITIS
  4. COLCHICINE. [Concomitant]
     Active Substance: COLCHICINE
     Indication: GOUT
     Dosage: UNK
  5. COLCHICINE. [Concomitant]
     Active Substance: COLCHICINE
     Indication: CELLULITIS
  6. METOPROLOL SUCCINATE. [Concomitant]
     Active Substance: METOPROLOL SUCCINATE
     Indication: CARDIAC FAILURE
     Dosage: UNK
  7. PRINIVIL [Suspect]
     Active Substance: LISINOPRIL
     Indication: CARDIAC FAILURE
     Dosage: UNK
     Route: 048

REACTIONS (1)
  - Angioedema [Recovered/Resolved]
